FAERS Safety Report 8565227-6 (Version None)
Quarter: 2012Q3

REPORT INFORMATION
  Report Type: 
  Country: None (occurrence: None)
  Receive Date: 20120803
  Receipt Date: 20120727
  Transmission Date: 20120928
  Serious: Yes (Hospitalization, Other)
  Sender: FDA-Public Use
  Company Number: BR-VIIV HEALTHCARE LIMITED-B0749982A

PATIENT
  Sex: Female
  Weight: 72.5 kg

DRUGS (6)
  1. LAMIVUDINE [Concomitant]
     Indication: HIV INFECTION
     Dosage: 300MG PER DAY
     Route: 048
     Dates: start: 20091119
  2. DARUNAVIR ETHANOLATE [Concomitant]
     Indication: HIV INFECTION
     Dosage: 1200MG PER DAY
     Route: 048
     Dates: start: 20091119
  3. RALTEGRAVIR [Concomitant]
     Indication: HIV INFECTION
     Route: 048
     Dates: start: 20091119
  4. RITONAVIR [Concomitant]
     Indication: HIV INFECTION
     Dosage: 200MG PER DAY
     Route: 048
     Dates: start: 20091119
  5. MARAVIROC [Suspect]
     Indication: HIV INFECTION
     Dosage: 150MG TWICE PER DAY
     Route: 048
     Dates: start: 20080703
  6. TENOFOVIR DISOPROXIL FUMARATE [Concomitant]
     Indication: HIV INFECTION
     Dosage: 300MG PER DAY
     Route: 048
     Dates: start: 20080801

REACTIONS (1)
  - PLASMABLASTIC LYMPHOMA [None]
